FAERS Safety Report 25913476 (Version 2)
Quarter: 2025Q4

REPORT INFORMATION
  Report Type: Spontaneous
  Country: GB (occurrence: GB)
  Receive Date: 20251013
  Receipt Date: 20251027
  Transmission Date: 20260117
  Serious: No
  Sender: KYOWA
  Company Number: GB-KYOWAKIRIN-2025KK019360

PATIENT

DRUGS (1)
  1. CRYSVITA [Suspect]
     Active Substance: BUROSUMAB-TWZA
     Indication: Hereditary hypophosphataemic rickets
     Dosage: 10 MG, 1X/2 WEEKS
     Route: 065
     Dates: start: 20250925

REACTIONS (1)
  - No adverse event [Unknown]
